FAERS Safety Report 5291826-3 (Version None)
Quarter: 2007Q2

REPORT INFORMATION
  Report Type: 
  Country: None (occurrence: None)
  Receive Date: 20070406
  Receipt Date: 20070406
  Transmission Date: 20071010
  Serious: Yes (Other)
  Sender: FDA-Public Use
  Company Number: None

PATIENT
  Sex: Female
  Weight: 54.4316 kg

DRUGS (2)
  1. AMBIEN CR [Suspect]
     Indication: INSOMNIA
     Dosage: 12.5 MG 1 AT BEDTIME
     Dates: start: 20060101, end: 20070101
  2. AMBIEN CR [Suspect]
     Indication: PAIN
     Dosage: 12.5 MG 1 AT BEDTIME
     Dates: start: 20060101, end: 20070101

REACTIONS (3)
  - ABNORMAL SLEEP-RELATED EVENT [None]
  - AMNESIA [None]
  - GAIT DISTURBANCE [None]
